FAERS Safety Report 8186156-6 (Version None)
Quarter: 2012Q1

REPORT INFORMATION
  Report Type: 
  Country: None (occurrence: None)
  Receive Date: 20120306
  Receipt Date: 20120228
  Transmission Date: 20120608
  Serious: No
  Sender: FDA-Public Use
  Company Number: US-PFIZER INC-2012054239

PATIENT
  Sex: Male
  Weight: 74.376 kg

DRUGS (2)
  1. COUMADIN [Concomitant]
     Indication: CARDIAC DISORDER
     Dosage: UNK
  2. VIAGRA [Suspect]
     Indication: ERECTILE DYSFUNCTION
     Dosage: 100 MG, UNK
     Route: 048

REACTIONS (1)
  - DRUG INEFFECTIVE [None]
